FAERS Safety Report 4742911-3 (Version None)
Quarter: 2005Q3

REPORT INFORMATION
  Report Type: 
  Country: None (occurrence: None)
  Receive Date: 20050804
  Receipt Date: 20050509
  Transmission Date: 20060218
  Serious: Yes (Other)
  Sender: FDA-Public Use
  Company Number: FACT0500275

PATIENT
  Age: 33 Year
  Sex: Female

DRUGS (3)
  1. FACTIVE [Suspect]
     Indication: RESPIRATORY TRACT INFECTION BACTERIAL
     Dosage: 320 MG, QD, ORAL
     Route: 048
     Dates: start: 20050416, end: 20050422
  2. JUNELLE FE [Concomitant]
  3. ZOLOFT [Concomitant]

REACTIONS (4)
  - CLOSTRIDIUM COLITIS [None]
  - PHARYNGITIS [None]
  - PYREXIA [None]
  - RASH GENERALISED [None]
